FAERS Safety Report 7285044-7 (Version None)
Quarter: 2011Q1

REPORT INFORMATION
  Report Type: 
  Country: None (occurrence: None)
  Receive Date: 20110210
  Receipt Date: 20110207
  Transmission Date: 20110831
  Serious: Yes (Other)
  Sender: FDA-Public Use
  Company Number: CA-PFIZER INC-2010018499

PATIENT
  Age: 53 Year
  Sex: Female
  Weight: 67.347 kg

DRUGS (3)
  1. CHAMPIX [Suspect]
     Indication: SMOKING CESSATION THERAPY
     Dosage: 1 MG, 1X/DAY
  2. CHAMPIX [Suspect]
     Dosage: 1 MG, 2X/DAY
  3. PAXIL [Concomitant]
     Indication: ANXIETY
     Dosage: 10 MG DAILY
     Route: 048

REACTIONS (4)
  - ANXIETY [None]
  - MALAISE [None]
  - NERVOUSNESS [None]
  - SUICIDAL IDEATION [None]
